FAERS Safety Report 6533657-X (Version None)
Quarter: 2010Q1

REPORT INFORMATION
  Report Type: 
  Country: None (occurrence: None)
  Receive Date: 20100108
  Receipt Date: 20100108
  Transmission Date: 20100710
  Serious: Yes (Disabling, Other)
  Sender: FDA-Public Use
  Company Number: None

PATIENT
  Age: 36 Year
  Sex: Female
  Weight: 69.8539 kg

DRUGS (1)
  1. MIRENA [Suspect]
     Indication: CONTRACEPTION
     Dosage: 3  I/2 MONTHS
     Dates: start: 20090921, end: 20100108

REACTIONS (6)
  - ANXIETY [None]
  - BIPOLAR I DISORDER [None]
  - ECZEMA [None]
  - IRRITABILITY [None]
  - OEDEMA PERIPHERAL [None]
  - RASH GENERALISED [None]
